FAERS Safety Report 23493135 (Version 1)
Quarter: 2024Q1

REPORT INFORMATION
  Report Type: Spontaneous
  Country: JP (occurrence: JP)
  Receive Date: 20240207
  Receipt Date: 20240207
  Transmission Date: 20240409
  Serious: Yes (Other)
  Sender: FDA-Public Use
  Company Number: JP-JNJFOC-20240218590

PATIENT

DRUGS (1)
  1. REMICADE [Suspect]
     Active Substance: INFLIXIMAB
     Indication: Product used for unknown indication
     Route: 041

REACTIONS (5)
  - Pneumonia [Unknown]
  - Tuberculosis [Unknown]
  - Pneumocystis jirovecii pneumonia [Unknown]
  - Atypical mycobacterial infection [Unknown]
  - Herpes zoster [Unknown]
